FAERS Safety Report 16239626 (Version 1)
Quarter: 2019Q2

REPORT INFORMATION
  Report Type: Spontaneous
  Country: US (occurrence: US)
  Receive Date: 20190425
  Receipt Date: 20190425
  Transmission Date: 20190711
  Serious: Yes (Other)
  Sender: FDA-Public Use
  Company Number: US-MYLANLABS-2019M1033920

PATIENT
  Sex: Female
  Weight: 52 kg

DRUGS (7)
  1. HYDROXYCHLOROQUINE [Suspect]
     Active Substance: HYDROXYCHLOROQUINE
     Indication: AUTOIMMUNE DISORDER
     Dosage: 200 MILLIGRAM, BID
     Route: 048
     Dates: start: 20181126
  2. RELPAX [Suspect]
     Active Substance: ELETRIPTAN HYDROBROMIDE
     Indication: HEADACHE
     Dosage: 40 MILLIGRAM, PRN
     Route: 048
     Dates: start: 201601
  3. PREDNISONE TABLETS USP [Suspect]
     Active Substance: PREDNISONE
     Dosage: 20 MILLIGRAM
  4. PREDNISONE TABLETS USP [Suspect]
     Active Substance: PREDNISONE
     Dosage: 15 MILLIGRAM
  5. PREDNISONE TABLETS USP [Suspect]
     Active Substance: PREDNISONE
     Indication: AUTOIMMUNE DISORDER
     Dosage: 3 DOSAGE FORM, QD
     Route: 048
     Dates: start: 201810
  6. PREDNISONE TABLETS USP [Suspect]
     Active Substance: PREDNISONE
     Dosage: 25 MILLIGRAM
  7. PREDNISONE TABLETS USP [Suspect]
     Active Substance: PREDNISONE
     Dosage: 12.5 MILLIGRAM

REACTIONS (3)
  - Autoimmune disorder [Recovered/Resolved]
  - Headache [Recovered/Resolved]
  - Condition aggravated [Recovered/Resolved]
